FAERS Safety Report 5985213-X (Version None)
Quarter: 2008Q4

REPORT INFORMATION
  Report Type: 
  Country: None (occurrence: None)
  Receive Date: 20081203
  Receipt Date: 20081119
  Transmission Date: 20090506
  Serious: Yes (Death)
  Sender: FDA-Public Use
  Company Number: KV200800334

PATIENT
  Age: 90 Year
  Sex: Female

DRUGS (3)
  1. MORPHINE SULFATE [Suspect]
     Indication: BACK PAIN
     Dosage: 15 MG, ONE TABLET, BID, ORAL
     Route: 048
     Dates: start: 20070101, end: 20081114
  2. LISINOPRIL [Concomitant]
  3. OXYGEN (OXYGEN) [Concomitant]

REACTIONS (2)
  - MYOCARDIAL INFARCTION [None]
  - PRODUCT QUALITY ISSUE [None]
